FAERS Safety Report 20109610 (Version 1)
Quarter: 2021Q4

REPORT INFORMATION
  Report Type: Spontaneous
  Country: US (occurrence: US)
  Receive Date: 20211124
  Receipt Date: 20211124
  Transmission Date: 20220303
  Serious: Yes (Death, Other)
  Sender: FDA-Public Use
  Company Number: US-AMGEN-USASP2021181931

PATIENT
  Age: 12 Month
  Sex: Male

DRUGS (3)
  1. RITUXIMAB [Suspect]
     Active Substance: RITUXIMAB
     Indication: Epstein-Barr virus associated lymphoproliferative disorder
     Dosage: UNK
  2. ETOPOSIDE [Concomitant]
     Active Substance: ETOPOSIDE
     Indication: Familial haemophagocytic lymphohistiocytosis
     Dosage: UNK
  3. ECULIZUMAB [Concomitant]
     Active Substance: ECULIZUMAB
     Indication: Familial haemophagocytic lymphohistiocytosis

REACTIONS (6)
  - Respiratory failure [Fatal]
  - Pneumonia [Fatal]
  - Acute graft versus host disease [Unknown]
  - Bone marrow transplant [Unknown]
  - Incorrect route of product administration [Unknown]
  - Off label use [Unknown]
